FAERS Safety Report 6197255-2 (Version None)
Quarter: 2009Q2

REPORT INFORMATION
  Report Type: 
  Country: None (occurrence: None)
  Receive Date: 20090521
  Receipt Date: 20090514
  Transmission Date: 20091009
  Serious: Yes (Death)
  Sender: FDA-Public Use
  Company Number: US-CELGENEUS-163-50794-09051375

PATIENT
  Sex: Male
  Weight: 98 kg

DRUGS (2)
  1. VIDAZA [Suspect]
     Route: 051
     Dates: start: 20090225, end: 20090409
  2. TARCEVA [Suspect]
     Route: 048
     Dates: start: 20090225, end: 20090422

REACTIONS (1)
  - URETERIC CANCER [None]
